FAERS Safety Report 16969649 (Version 1)
Quarter: 2019Q4

REPORT INFORMATION
  Report Type: Spontaneous
  Country: US (occurrence: US)
  Receive Date: 20191029
  Receipt Date: 20191029
  Transmission Date: 20200122
  Serious: Yes (Life-Threatening, Hospitalization)
  Sender: FDA-Public Use
  Company Number: US-TEVA-2019-US-1128903

PATIENT
  Age: 51 Year
  Sex: Female

DRUGS (2)
  1. PROPOFOL. [Suspect]
     Active Substance: PROPOFOL
     Indication: ANAESTHESIA
     Dosage: 700ML AT A CONCENTRATION OF 10MG/ML
     Route: 042
  2. PROPOFOL. [Suspect]
     Active Substance: PROPOFOL
     Indication: SEDATIVE THERAPY

REACTIONS (4)
  - Administration site extravasation [Recovering/Resolving]
  - Unresponsive to stimuli [Recovering/Resolving]
  - Soft tissue injury [Recovering/Resolving]
  - Sedation complication [Recovering/Resolving]
